FAERS Safety Report 12824030 (Version 1)
Quarter: 2016Q4

REPORT INFORMATION
  Report Type: Spontaneous
  Country: US (occurrence: US)
  Receive Date: 20161007
  Receipt Date: 20161007
  Transmission Date: 20170207
  Serious: Yes (Hospitalization, Other)
  Sender: FDA-Public Use
  Company Number: None

PATIENT
  Age: 14 Year
  Sex: Female
  Weight: 58.5 kg

DRUGS (1)
  1. ZYRTEC [Suspect]
     Active Substance: CETIRIZINE HYDROCHLORIDE
     Indication: MULTIPLE ALLERGIES
     Dosage: ?          OTHER ROUTE:ORAL?
     Route: 048

REACTIONS (4)
  - Pulse absent [None]
  - Concussion [None]
  - Syncope [None]
  - Skull fracture [None]

NARRATIVE: CASE EVENT DATE: 20160911
